FAERS Safety Report 25543663 (Version 1)
Quarter: 2025Q3

REPORT INFORMATION
  Report Type: Spontaneous
  Country: EU (occurrence: EU)
  Receive Date: 20250711
  Receipt Date: 20250711
  Transmission Date: 20251020
  Serious: Yes (Disabling, Other)
  Sender: AUROBINDO
  Company Number: EU-002147023-NVSC2025DE103731

PATIENT
  Age: 75 Year
  Sex: Female
  Weight: 52 kg

DRUGS (5)
  1. LETROZOLE [Suspect]
     Active Substance: LETROZOLE
     Indication: Breast cancer
     Route: 065
     Dates: start: 202012, end: 20210101
  2. EXEMESTANE [Suspect]
     Active Substance: EXEMESTANE
     Indication: Breast cancer female
     Dosage: 25 MILLIGRAM, ONCE A DAY
     Route: 048
     Dates: start: 20210101, end: 20250410
  3. EXEMESTANE [Suspect]
     Active Substance: EXEMESTANE
     Route: 065
     Dates: start: 20210105, end: 20220411
  4. ELIQUIS [Concomitant]
     Active Substance: APIXABAN
     Indication: Transient ischaemic attack
     Route: 065
  5. METOPROLOL [Concomitant]
     Active Substance: METOPROLOL
     Indication: Atrial fibrillation
     Route: 065

REACTIONS (2)
  - Normal tension glaucoma [Recovered/Resolved with Sequelae]
  - Diplopia [Unknown]

NARRATIVE: CASE EVENT DATE: 20210506
